FAERS Safety Report 24259831 (Version 1)
Quarter: 2024Q3

REPORT INFORMATION
  Report Type: Spontaneous
  Country: US (occurrence: US)
  Receive Date: 20240828
  Receipt Date: 20240828
  Transmission Date: 20241017
  Serious: No
  Sender: DR REDDYS
  Company Number: US-DRL-USA-LIT/USA/24/0012414

PATIENT
  Age: 42 Year
  Sex: Female

DRUGS (3)
  1. MINOCYCLINE [Suspect]
     Active Substance: MINOCYCLINE HYDROCHLORIDE
     Indication: Hidradenitis
  2. DAPSONE [Suspect]
     Active Substance: DAPSONE
     Indication: Hidradenitis
  3. CLINDAMYCIN [Suspect]
     Active Substance: CLINDAMYCIN
     Indication: Hidradenitis
     Route: 061

REACTIONS (2)
  - Abdominal pain upper [Unknown]
  - Drug ineffective for unapproved indication [Unknown]
